FAERS Safety Report 11311618 (Version 1)
Quarter: 2015Q3

REPORT INFORMATION
  Report Type: Spontaneous
  Country: CA (occurrence: CA)
  Receive Date: 20150727
  Receipt Date: 20150727
  Transmission Date: 20151125
  Serious: Yes (Other)
  Sender: FDA-Public Use
  Company Number: CA-JNJFOC-20150714791

PATIENT
  Age: 47 Year
  Sex: Female
  Weight: 63.5 kg

DRUGS (13)
  1. TYLENOL WITH CODEINE [Concomitant]
     Active Substance: ACETAMINOPHEN\CODEINE PHOSPHATE
     Route: 065
  2. REMICADE [Suspect]
     Active Substance: INFLIXIMAB
     Indication: SJOGREN^S SYNDROME
     Route: 042
  3. LYRICA [Concomitant]
     Active Substance: PREGABALIN
     Route: 065
  4. BRICANYL [Concomitant]
     Active Substance: TERBUTALINE SULFATE
     Route: 065
  5. IMURAN [Concomitant]
     Active Substance: AZATHIOPRINE
     Route: 065
  6. REMICADE [Suspect]
     Active Substance: INFLIXIMAB
     Indication: CROHN^S DISEASE
     Route: 042
  7. CLAVULIN [Concomitant]
     Active Substance: AMOXICILLIN\CLAVULANIC ACID
     Route: 065
  8. VITAMIN B12 [Concomitant]
     Active Substance: CYANOCOBALAMIN
     Route: 065
  9. CALCIUM AND VITAMIN D [Concomitant]
     Active Substance: CALCIUM\VITAMIN D
     Route: 065
  10. CITALOPRAM [Concomitant]
     Active Substance: CITALOPRAM HYDROBROMIDE
     Route: 065
  11. NASONEX [Concomitant]
     Active Substance: MOMETASONE FUROATE
     Route: 065
  12. NEXIUM [Concomitant]
     Active Substance: ESOMEPRAZOLE MAGNESIUM
     Route: 065
  13. TRI-CYCLEN LO [Concomitant]
     Active Substance: ETHINYL ESTRADIOL\NORGESTIMATE
     Route: 065

REACTIONS (14)
  - Multiple sclerosis [Recovering/Resolving]
  - Intervertebral disc protrusion [Recovering/Resolving]
  - Asthenia [Recovering/Resolving]
  - Paraesthesia [Recovering/Resolving]
  - Cough [Recovering/Resolving]
  - Vomiting [Recovering/Resolving]
  - Hypoaesthesia [Recovering/Resolving]
  - Paralysis [Recovering/Resolving]
  - Fall [Recovering/Resolving]
  - Muscular weakness [Recovering/Resolving]
  - Headache [Recovering/Resolving]
  - Erythema [Recovering/Resolving]
  - Blood pressure increased [Recovering/Resolving]
  - Product use issue [Unknown]
